FAERS Safety Report 7558397-X (Version None)
Quarter: 2011Q2

REPORT INFORMATION
  Report Type: 
  Country: None (occurrence: None)
  Receive Date: 20110620
  Receipt Date: 20110607
  Transmission Date: 20111010
  Serious: Yes (Hospitalization)
  Sender: FDA-Public Use
  Company Number: PHHY2011US50015

PATIENT
  Sex: Male

DRUGS (3)
  1. EXJADE [Suspect]
     Indication: HAEMOCHROMATOSIS
     Dosage: 2250 MG, DAILY
     Route: 048
     Dates: start: 20110209
  2. EXJADE [Suspect]
     Indication: LYMPHOPROLIFERATIVE DISORDER
  3. EXJADE [Suspect]
     Indication: MAGNESIUM METABOLISM DISORDER

REACTIONS (1)
  - INTERSTITIAL LUNG DISEASE [None]
